FAERS Safety Report 22145502 (Version 1)
Quarter: 2023Q1

REPORT INFORMATION
  Report Type: Spontaneous
  Country: CH (occurrence: CH)
  Receive Date: 20230328
  Receipt Date: 20230328
  Transmission Date: 20230417
  Serious: No
  Sender: FDA-Public Use
  Company Number: CH-ALKEM LABORATORIES LIMITED-CH-ALKEM-2022-14737

PATIENT
  Age: 64 Year
  Sex: Male

DRUGS (9)
  1. MORPHINE SULFATE [Suspect]
     Active Substance: MORPHINE SULFATE
     Indication: Cancer pain
     Dosage: UNK, ORAL SOLUTION (UP TO 40 MG EVERY 4 HOURS)
     Route: 048
  2. MORPHINE SULFATE [Suspect]
     Active Substance: MORPHINE SULFATE
     Dosage: 25 MILLIGRAM, PRN (TID)
     Route: 048
  3. CODEINE [Suspect]
     Active Substance: CODEINE
     Indication: Cancer pain
     Dosage: 50 MILLIGRAM, TID
     Route: 048
     Dates: start: 2019
  4. HYDROMORPHONE [Suspect]
     Active Substance: HYDROMORPHONE
     Indication: Osteolysis
     Dosage: UNK (UP TO 10 MG EVERY 4 HOURS SYSTEMATICALLY)
     Route: 048
     Dates: start: 202105
  5. HYDROMORPHONE [Suspect]
     Active Substance: HYDROMORPHONE
     Dosage: 5 MILLIGRAM, TID (AS NEEDED)
     Route: 048
  6. HYDROMORPHONE [Suspect]
     Active Substance: HYDROMORPHONE
     Dosage: 1.3 MILLIGRAM (EVERY 4 HOURS)
     Route: 048
     Dates: start: 202105
  7. HYDROMORPHONE [Suspect]
     Active Substance: HYDROMORPHONE
     Dosage: 1.3 MILLIGRAM (6 TIMES A DAY AS NEEDED))
     Route: 048
     Dates: start: 202105
  8. BUPRENORPHINE [Concomitant]
     Active Substance: BUPRENORPHINE
     Indication: Drug dependence
     Dosage: UNK, TID (UP TO 0.4 MG) SYSTEMATICALLY
     Route: 060
  9. BUPRENORPHINE [Concomitant]
     Active Substance: BUPRENORPHINE
     Dosage: 0.2 MILLIGRAM, BID (AS NEEDED)
     Route: 060

REACTIONS (1)
  - Hiccups [Recovered/Resolved]
